FAERS Safety Report 4801214-9 (Version None)
Quarter: 2005Q4

REPORT INFORMATION
  Report Type: 
  Country: None (occurrence: None)
  Receive Date: 20051011
  Receipt Date: 20050930
  Transmission Date: 20060501
  Serious: Yes (Hospitalization)
  Sender: FDA-Public Use
  Company Number: 2005135621

PATIENT
  Age: 68 Year
  Sex: Male

DRUGS (4)
  1. DOXAZOSIN MESYLATE [Suspect]
     Indication: HYPERTENSION
     Dosage: 0.5 MG (DAILY), ORAL
     Route: 048
     Dates: start: 20050112, end: 20050920
  2. LIPITOR [Suspect]
     Indication: HYPERLIPIDAEMIA
     Dosage: 5 MG (DAILY), ORAL
     Route: 048
     Dates: start: 20050112, end: 20050910
  3. NU LOTAN (LOSARTAN POTSSIUM) [Suspect]
     Indication: HYPERTENSION
     Dosage: 25 MG (DAILY), ORAL
     Route: 048
     Dates: start: 20050112, end: 20050920
  4. CONIEL (BENIDIPINE HYDROCHLORIDE) [Concomitant]

REACTIONS (2)
  - LIVER DISORDER [None]
  - RHABDOMYOLYSIS [None]
